FAERS Safety Report 10458886 (Version 1)
Quarter: 2014Q3

REPORT INFORMATION
  Report Type: Spontaneous
  Country: US (occurrence: None)
  Receive Date: 20140916
  Receipt Date: 20140916
  Transmission Date: 20150326
  Serious: Yes (Disabling)
  Sender: FDA-Public Use
  Company Number: None

PATIENT
  Age: 70 Year
  Sex: Female
  Weight: 70.31 kg

DRUGS (1)
  1. VIMOVO [Suspect]
     Active Substance: ESOMEPRAZOLE MAGNESIUM\NAPROXEN
     Indication: TENDON INJURY
     Dosage: 500MG /20MG 2 PILLS NO MORE MOUTH
     Route: 048
     Dates: start: 20140815, end: 20140815

REACTIONS (5)
  - Dyskinesia [None]
  - Confusional state [None]
  - Abdominal pain upper [None]
  - Tremor [None]
  - Disorientation [None]

NARRATIVE: CASE EVENT DATE: 20140815
